FAERS Safety Report 6216465-9 (Version None)
Quarter: 2009Q2

REPORT INFORMATION
  Report Type: 
  Country: None (occurrence: None)
  Receive Date: 20090604
  Receipt Date: 20090604
  Transmission Date: 20091009
  Serious: Yes (Hospitalization)
  Sender: FDA-Public Use
  Company Number: None

PATIENT
  Age: 66 Year
  Sex: Female
  Weight: 64 kg

DRUGS (8)
  1. ACTIVASE [Suspect]
     Indication: CEREBROVASCULAR ACCIDENT
     Dosage: 60MG (TOTAL) ONE TIME IV
     Route: 042
     Dates: start: 20090108
  2. FLUTICASONE NASAL INHALER [Concomitant]
  3. BENAZAPRIL/HCTZ [Concomitant]
  4. OMEGA-3 FATTY ACIDS [Concomitant]
  5. M.V.I. [Concomitant]
  6. CALCIUM [Concomitant]
  7. ASPIRIN [Concomitant]
  8. OLOPATADINE OPTH [Concomitant]

REACTIONS (1)
  - HAEMORRHAGIC CEREBRAL INFARCTION [None]
